FAERS Safety Report 8444510-9 (Version None)
Quarter: 2012Q2

REPORT INFORMATION
  Report Type: 
  Country: None (occurrence: None)
  Receive Date: 20120618
  Receipt Date: 20110809
  Transmission Date: 20120825
  Serious: No
  Sender: FDA-Public Use
  Company Number: JP-ASTRAZENECA-2011SE31947

PATIENT
  Sex: Female
  Weight: 76.6 kg

DRUGS (16)
  1. SEROQUEL [Suspect]
     Indication: DEPRESSION
     Route: 048
  2. RETICOLAN [Concomitant]
     Indication: DISSOCIATIVE DISORDER
     Route: 065
  3. HIRNAMIN [Concomitant]
  4. DOGMATYL [Suspect]
     Indication: DISSOCIATIVE DISORDER
     Route: 048
  5. ROHYPNOL [Concomitant]
     Indication: DEPRESSION
     Route: 048
  6. NITRAZEPAM [Concomitant]
     Indication: DEPRESSION
     Route: 048
  7. CHLORPROMAZINE HCL [Concomitant]
     Indication: DISSOCIATIVE DISORDER
     Route: 048
  8. CHLORPROMAZINE HCL [Concomitant]
     Indication: DEPRESSION
     Route: 048
  9. ROHYPNOL [Concomitant]
     Indication: DISSOCIATIVE DISORDER
     Route: 048
  10. SEROQUEL [Suspect]
     Indication: DISSOCIATIVE DISORDER
     Route: 048
  11. ANAFRANIL [Concomitant]
     Indication: DEPRESSION
     Route: 048
  12. ANAFRANIL [Concomitant]
     Indication: DISSOCIATIVE DISORDER
     Route: 048
  13. DEPAKENE [Concomitant]
     Dosage: DIVIDED INTO 4 DOSES
  14. DOGMATYL [Suspect]
     Indication: DEPRESSION
     Route: 048
  15. RETICOLAN [Concomitant]
     Indication: DEPRESSION
     Route: 065
  16. NITRAZEPAM [Concomitant]
     Indication: DISSOCIATIVE DISORDER
     Route: 048

REACTIONS (2)
  - OEDEMA PERIPHERAL [None]
  - MATERNAL EXPOSURE DURING PREGNANCY [None]
